FAERS Safety Report 17455565 (Version 1)
Quarter: 2020Q1

REPORT INFORMATION
  Report Type: Spontaneous
  Country: AR (occurrence: AR)
  Receive Date: 20200225
  Receipt Date: 20200225
  Transmission Date: 20200409
  Serious: Yes (Hospitalization)
  Sender: FDA-Public Use
  Company Number: AR-UNITED THERAPEUTICS-UNT-2020-002905

PATIENT
  Age: 12 Month
  Sex: Female

DRUGS (1)
  1. REMODULIN [Suspect]
     Active Substance: TREPROSTINIL
     Indication: PULMONARY ARTERIAL HYPERTENSION
     Dosage: UNK, CONTINUING
     Route: 058
     Dates: start: 20190520

REACTIONS (2)
  - Dacryostenosis acquired [Recovering/Resolving]
  - Dacryocanaliculitis [Recovering/Resolving]

NARRATIVE: CASE EVENT DATE: 20200205
